FAERS Safety Report 10209585 (Version 1)
Quarter: 2014Q2

REPORT INFORMATION
  Report Type: Spontaneous
  Country: US (occurrence: US)
  Receive Date: 20140602
  Receipt Date: 20140602
  Transmission Date: 20141212
  Serious: Yes (Hospitalization, Other)
  Sender: FDA-Public Use
  Company Number: US-AMGEN INC.-USASP2014040027

PATIENT
  Age: 57 Year
  Sex: Female

DRUGS (3)
  1. ENBREL [Suspect]
     Indication: RHEUMATOID ARTHRITIS
     Dosage: UNK UNK, QWK
     Route: 065
     Dates: start: 20131118, end: 201312
  2. PLAQUENIL                          /00072602/ [Concomitant]
     Dosage: UNK
     Dates: start: 2008
  3. ARAVA [Concomitant]
     Dosage: UNK
     Dates: start: 2008

REACTIONS (1)
  - Ruptured cerebral aneurysm [Recovered/Resolved]
